FAERS Safety Report 11537866 (Version 3)
Quarter: 2018Q1

REPORT INFORMATION
  Report Type: Report from Study
  Country: CA (occurrence: CA)
  Receive Date: 20150922
  Receipt Date: 20180115
  Transmission Date: 20180508
  Serious: Yes (Other)
  Sender: FDA-Public Use
  Company Number: CA-ALEXION PHARMACEUTICALS INC.-A201502420

PATIENT
  Age: 23 Year
  Sex: Female
  Weight: 56 kg

DRUGS (17)
  1. SOLIRIS [Suspect]
     Active Substance: ECULIZUMAB
     Indication: ATYPICAL HAEMOLYTIC URAEMIC SYNDROME
     Dosage: 900 MG, UNK
     Route: 042
     Dates: start: 20150622, end: 20150715
  2. SOLIRIS [Suspect]
     Active Substance: ECULIZUMAB
     Dosage: 1200 MG, Q2W
     Route: 065
  3. MYCOPHENOLATE MOFETIL. [Concomitant]
     Active Substance: MYCOPHENOLATE MOFETIL
     Indication: PRODUCT USED FOR UNKNOWN INDICATION
     Dosage: 1000 MG, UNK
     Route: 065
  4. OLMESARTAN [Concomitant]
     Active Substance: OLMESARTAN
     Indication: PRODUCT USED FOR UNKNOWN INDICATION
     Route: 065
  5. FOSINOPRIL [Concomitant]
     Active Substance: FOSINOPRIL
     Indication: SYSTEMIC LUPUS ERYTHEMATOSUS
     Dosage: 10 MG, BID
     Route: 048
     Dates: start: 2001
  6. PREDNISONE. [Concomitant]
     Active Substance: PREDNISONE
     Dosage: 15 UNK, UNK
  7. PLAQUENIL                          /00072602/ [Concomitant]
     Active Substance: HYDROXYCHLOROQUINE DIPHOSPHATE
     Indication: SYSTEMIC LUPUS ERYTHEMATOSUS
     Dosage: 300 MG, QD
     Route: 048
     Dates: start: 2001
  8. HYDROXYCHLOROQUINE [Concomitant]
     Active Substance: HYDROXYCHLOROQUINE
     Indication: PRODUCT USED FOR UNKNOWN INDICATION
     Dosage: 100 MG, QD
     Route: 065
  9. CALCIUM CARBONATE. [Concomitant]
     Active Substance: CALCIUM CARBONATE
     Indication: PRODUCT USED FOR UNKNOWN INDICATION
     Route: 065
  10. SOLIRIS [Suspect]
     Active Substance: ECULIZUMAB
     Dosage: 1200 MG , Q2W
     Route: 042
     Dates: start: 20150721, end: 20150805
  11. CELLCEPT [Concomitant]
     Active Substance: MYCOPHENOLATE MOFETIL\MYCOPHENOLATE MOFETIL HYDROCHLORIDE
     Indication: SYSTEMIC LUPUS ERYTHEMATOSUS
     Dosage: 1250 MG, BID
     Route: 048
     Dates: start: 2001
  12. VITAMIN B [Concomitant]
     Active Substance: VITAMIN B
     Indication: PRODUCT USED FOR UNKNOWN INDICATION
     Route: 065
  13. BISOPROLOL [Concomitant]
     Active Substance: BISOPROLOL
     Indication: PRODUCT USED FOR UNKNOWN INDICATION
     Route: 065
  14. VITAMIN C [Concomitant]
     Active Substance: ASCORBIC ACID
     Indication: PRODUCT USED FOR UNKNOWN INDICATION
     Route: 065
  15. PREDNISONE. [Concomitant]
     Active Substance: PREDNISONE
     Indication: SYSTEMIC LUPUS ERYTHEMATOSUS
     Dosage: 25 MG, QD
     Route: 048
     Dates: start: 2001
  16. PENICILLIN                         /00000901/ [Concomitant]
     Active Substance: PENICILLIN G
     Indication: PROPHYLAXIS
     Dosage: UNK
     Route: 048
     Dates: start: 201506
  17. VITAMIN D                          /00107901/ [Concomitant]
     Active Substance: ERGOCALCIFEROL
     Indication: PRODUCT USED FOR UNKNOWN INDICATION
     Route: 065

REACTIONS (16)
  - Gonorrhoea [Recovered/Resolved]
  - Hypertension [Not Recovered/Not Resolved]
  - Neutrophil count increased [Unknown]
  - Haemoglobin decreased [Unknown]
  - End stage renal disease [Not Recovered/Not Resolved]
  - Blood creatinine increased [Unknown]
  - Influenza [Recovered/Resolved]
  - Kidney fibrosis [Unknown]
  - Pyrexia [Not Recovered/Not Resolved]
  - Heart rate increased [Unknown]
  - Lymphocyte count decreased [Unknown]
  - Drug ineffective [Unknown]
  - Complement factor abnormal [Unknown]
  - Malaise [Unknown]
  - White blood cell count increased [Unknown]
  - Alanine aminotransferase decreased [Unknown]

NARRATIVE: CASE EVENT DATE: 20150622
